FAERS Safety Report 5125705-9 (Version None)
Quarter: 2006Q4

REPORT INFORMATION
  Report Type: 
  Country: None (occurrence: None)
  Receive Date: 20061012
  Receipt Date: 20061004
  Transmission Date: 20070319
  Serious: Yes (Other)
  Sender: FDA-Public Use
  Company Number: DE-JNJFOC-20061001083

PATIENT
  Sex: Female

DRUGS (1)
  1. CONCERTA [Suspect]
     Indication: DRUG USE FOR UNKNOWN INDICATION
     Dosage: SINCE 2-3 YEARS
     Route: 048

REACTIONS (1)
  - BULIMIA NERVOSA [None]
